FAERS Safety Report 7484409-8 (Version None)
Quarter: 2011Q2

REPORT INFORMATION
  Report Type: 
  Country: None (occurrence: None)
  Receive Date: 20110513
  Receipt Date: 20110513
  Transmission Date: 20111010
  Serious: Yes (Other)
  Sender: FDA-Public Use
  Company Number: None

PATIENT
  Age: 51 Year
  Sex: Female
  Weight: 88.4514 kg

DRUGS (3)
  1. BISACODYL [Concomitant]
  2. GAVILYTE-C PEG 3350 240G (4000 ML) BY GAVIS PHARMA [Suspect]
     Dosage: 240 G 6 OZ EVERY 10MIN ORALLY
     Route: 048
     Dates: start: 20110503, end: 20110505
  3. LEVOTHYROXINE SODIUM [Concomitant]

REACTIONS (7)
  - INCORRECT DOSE ADMINISTERED [None]
  - HEADACHE [None]
  - PRODUCT LABEL CONFUSION [None]
  - MEDICATION ERROR [None]
  - PRODUCT PACKAGING ISSUE [None]
  - THIRST [None]
  - ABDOMINAL DISCOMFORT [None]
